FAERS Safety Report 9280225 (Version 1)
Quarter: 2013Q2

REPORT INFORMATION
  Report Type: Report from Study
  Country: CA (occurrence: CA)
  Receive Date: 20130509
  Receipt Date: 20130509
  Transmission Date: 20140414
  Serious: Yes (Death, Other)
  Sender: FDA-Public Use
  Company Number: PHHY2011CA100086

PATIENT
  Age: 78 Year
  Sex: Female

DRUGS (2)
  1. ZOMETA [Suspect]
     Indication: PLASMA CELL MYELOMA
     Dosage: 4 MG, EVERY 4 WEEKS
     Route: 042
     Dates: start: 20111108, end: 20130322
  2. ANTIBIOTICS [Concomitant]
     Dosage: UNK UKN, UNK

REACTIONS (15)
  - Death [Fatal]
  - Rash generalised [Unknown]
  - Device failure [Unknown]
  - Joint swelling [Unknown]
  - Contusion [Unknown]
  - Oropharyngeal pain [Unknown]
  - Gait disturbance [Unknown]
  - Ligament sprain [Unknown]
  - Abasia [Unknown]
  - Nasopharyngitis [Unknown]
  - Arthralgia [Unknown]
  - Groin pain [Unknown]
  - Pain in extremity [Unknown]
  - Malaise [Unknown]
  - Cough [Unknown]
